FAERS Safety Report 7897554-X (Version None)
Quarter: 2011Q4

REPORT INFORMATION
  Report Type: 
  Country: None (occurrence: None)
  Receive Date: 20111107
  Receipt Date: 20111026
  Transmission Date: 20120403
  Serious: Yes (Hospitalization)
  Sender: FDA-Public Use
  Company Number: US-ELI_LILLY_AND_COMPANY-US201110007843

PATIENT
  Age: 64 Year
  Sex: Male

DRUGS (5)
  1. ANGIOMAX [Concomitant]
     Indication: ACUTE MYOCARDIAL INFARCTION
     Dosage: UNK UNK, UNKNOWN
     Route: 042
     Dates: start: 20111021
  2. EFFIENT [Suspect]
     Dosage: UNK, UNKNOWN
  3. HEPARIN [Concomitant]
     Indication: ACUTE MYOCARDIAL INFARCTION
     Dosage: UNK, UNKNOWN
     Route: 042
     Dates: start: 20111021
  4. INTEGRILIN [Concomitant]
     Indication: ACUTE MYOCARDIAL INFARCTION
     Dosage: UNK, UNKNOWN
     Route: 042
     Dates: start: 20111021
  5. EFFIENT [Suspect]
     Indication: ACUTE MYOCARDIAL INFARCTION
     Dosage: 60 MG, LOADING
     Dates: start: 20111021

REACTIONS (1)
  - THROMBOSIS IN DEVICE [None]
